FAERS Safety Report 5573627-1 (Version None)
Quarter: 2007Q4

REPORT INFORMATION
  Report Type: 
  Country: None (occurrence: None)
  Receive Date: 20071226
  Receipt Date: 20071218
  Transmission Date: 20080405
  Serious: Yes (Hospitalization, Other)
  Sender: FDA-Public Use
  Company Number: US-ELI_LILLY_AND_COMPANY-US200711006118

PATIENT
  Sex: Female
  Weight: 101.13 kg

DRUGS (13)
  1. BYETTA [Suspect]
     Dosage: 5 UG, 2/D
     Route: 058
     Dates: start: 20050101, end: 20050101
  2. BYETTA [Suspect]
     Dosage: 10 UG, 2/D
     Route: 058
     Dates: start: 20050101, end: 20070701
  3. BYETTA [Suspect]
     Dosage: 10 UG, 2/D
     Route: 058
     Dates: start: 20070701
  4. GLUCOTROL XL [Concomitant]
     Dosage: 10 MG, 2/D
     Route: 048
  5. RIOMET [Concomitant]
     Dosage: 1000 MG, 2/D
     Route: 048
  6. SYNTHROID [Concomitant]
     Indication: HYPOTHYROIDISM
     Dosage: 50 UG, DAILY (1/D)
     Route: 048
  7. BENAZEPRIL HCL AND HYDROCHLOROTHIAZIDE [Concomitant]
     Indication: HYPERTENSION
     Dosage: UNK, DAILY (1/D)
     Route: 048
  8. LIPITOR [Concomitant]
     Indication: BLOOD CHOLESTEROL INCREASED
     Dosage: 40 MG, QOD
  9. SERTRALINE [Concomitant]
     Indication: PANIC ATTACK
     Dosage: 100 MG, UNKNOWN
     Route: 048
  10. ASPIRIN [Concomitant]
     Indication: PROPHYLAXIS
     Dosage: UNK, UNKNOWN
     Dates: start: 20020101, end: 20070701
  11. ATIVAN [Concomitant]
     Dosage: UNK, AS NEEDED
  12. MULTI-VITAMIN [Concomitant]
     Dosage: UNK, DAILY (1/D)
  13. INSULIN [Concomitant]
     Dosage: UNK, UNKNOWN
     Dates: start: 20070701, end: 20070701

REACTIONS (10)
  - ANAEMIA [None]
  - ASTHENIA [None]
  - DIARRHOEA [None]
  - EARLY SATIETY [None]
  - FEELING ABNORMAL [None]
  - FOOD CRAVING [None]
  - GASTROINTESTINAL HAEMORRHAGE [None]
  - LIVER DISORDER [None]
  - VARICES OESOPHAGEAL [None]
  - WEIGHT DECREASED [None]
